FAERS Safety Report 13665692 (Version 2)
Quarter: 2017Q3

REPORT INFORMATION
  Report Type: Spontaneous
  Country: SE (occurrence: SE)
  Receive Date: 20170619
  Receipt Date: 20170815
  Transmission Date: 20171127
  Serious: Yes (Other)
  Sender: FDA-Public Use
  Company Number: SE-NOVOPROD-549285

PATIENT
  Age: 75 Year
  Sex: Female

DRUGS (3)
  1. VAGIFEM [Suspect]
     Active Substance: ESTRADIOL
     Dosage: UNK
     Route: 067
     Dates: start: 201703
  2. VAGIFEM [Suspect]
     Active Substance: ESTRADIOL
     Indication: ATROPHIC VULVOVAGINITIS
     Dosage: 10 ?G, BIW
     Route: 067
     Dates: start: 20121204
  3. VAGIFEM [Suspect]
     Active Substance: ESTRADIOL
     Indication: MUCOSAL DRYNESS
     Dosage: 10 ?G, 2-3 TIMES/WEEK
     Route: 067
     Dates: start: 20140918, end: 201610

REACTIONS (1)
  - Vaginal polyp [Not Recovered/Not Resolved]

NARRATIVE: CASE EVENT DATE: 201703
